FAERS Safety Report 15666959 (Version 1)
Quarter: 2018Q4

REPORT INFORMATION
  Report Type: Spontaneous
  Country: US (occurrence: US)
  Receive Date: 20181128
  Receipt Date: 20181128
  Transmission Date: 20190205
  Serious: Yes (Other)
  Sender: FDA-Public Use
  Company Number: US-ROCHE-2159612

PATIENT
  Age: 38 Year
  Sex: Female

DRUGS (1)
  1. OCREVUS [Suspect]
     Active Substance: OCRELIZUMAB
     Indication: PRODUCT USED FOR UNKNOWN INDICATION
     Dosage: SHE WAS SCHEDULED TO RECEIVE HER SECOND DOSE OF OCRELIZUMAB ON AN UNSPECIFIED DATE IN SEP 2018.
     Route: 065
     Dates: start: 201803

REACTIONS (1)
  - Infusion related reaction [Unknown]
